FAERS Safety Report 9925158 (Version 1)
Quarter: 2014Q1

REPORT INFORMATION
  Report Type: Report from Study
  Country: US (occurrence: US)
  Receive Date: 20140226
  Receipt Date: 20140226
  Transmission Date: 20141002
  Serious: Yes (Life-Threatening, Hospitalization)
  Sender: FDA-Public Use
  Company Number: US-PFIZER INC-2014052387

PATIENT
  Age: 38 Year
  Sex: Female

DRUGS (2)
  1. EXEMESTANE [Suspect]
     Indication: BREAST CANCER
     Dosage: 25 MG, UNK
     Route: 048
     Dates: start: 20101207
  2. TRIPTORELIN PAMOATE [Suspect]
     Indication: BREAST CANCER
     Dosage: 3.75 MG, UNK
     Route: 030
     Dates: start: 20100916

REACTIONS (1)
  - Suicidal ideation [Not Recovered/Not Resolved]
